FAERS Safety Report 8168893-2 (Version None)
Quarter: 2012Q1

REPORT INFORMATION
  Report Type: 
  Country: None (occurrence: None)
  Receive Date: 20120227
  Receipt Date: 20120201
  Transmission Date: 20120608
  Serious: No
  Sender: FDA-Public Use
  Company Number: US-B.I. PHARMACEUTICALS,INC./RIDGEFIELD-2011-BP-01724BP

PATIENT
  Sex: Male
  Weight: 130.9 kg

DRUGS (2)
  1. MIRAPEX [Suspect]
     Indication: RESTLESS LEGS SYNDROME
     Dates: start: 20070727
  2. MIRAPEX [Suspect]
     Indication: PARKINSON'S DISEASE

REACTIONS (7)
  - SOMNOLENCE [None]
  - PAIN [None]
  - INCREASED APPETITE [None]
  - SUICIDAL IDEATION [None]
  - OBSESSIVE-COMPULSIVE DISORDER [None]
  - EMOTIONAL DISTRESS [None]
  - PATHOLOGICAL GAMBLING [None]
